FAERS Safety Report 4458946-4 (Version None)
Quarter: 2004Q3

REPORT INFORMATION
  Report Type: 
  Country: None (occurrence: None)
  Receive Date: 20040923
  Receipt Date: 20040923
  Transmission Date: 20050211
  Serious: No
  Sender: FDA-Public Use
  Company Number: None

PATIENT
  Age: 65 Year
  Sex: Male
  Weight: 86.1834 kg

DRUGS (4)
  1. ALPRAZOLAM [Suspect]
     Indication: DEPRESSION
     Dosage: 0.25 MG PO
     Route: 048
     Dates: start: 20040801
  2. ALPRAZOLAM [Suspect]
     Indication: POST-TRAUMATIC STRESS DISORDER
     Dosage: 0.25 MG PO
     Route: 048
     Dates: start: 20040801
  3. ALPRAZOLAM [Suspect]
     Indication: DEPRESSION
     Dosage: 0.25 MG PO
     Route: 048
     Dates: start: 20040901
  4. ALPRAZOLAM [Suspect]
     Indication: POST-TRAUMATIC STRESS DISORDER
     Dosage: 0.25 MG PO
     Route: 048
     Dates: start: 20040901

REACTIONS (3)
  - PHARMACEUTICAL PRODUCT COMPLAINT [None]
  - RESTLESSNESS [None]
  - TREMOR [None]
